FAERS Safety Report 21166499 (Version 3)
Quarter: 2022Q4

REPORT INFORMATION
  Report Type: Spontaneous
  Country: PT (occurrence: PT)
  Receive Date: 20220803
  Receipt Date: 20221127
  Transmission Date: 20230112
  Serious: Yes (Other)
  Sender: FDA-Public Use
  Company Number: PT-MYLANLABS-2022M1080107

PATIENT
  Age: 30 Year
  Sex: Female

DRUGS (8)
  1. RISPERDAL [Suspect]
     Active Substance: RISPERIDONE
     Indication: Psychotic disorder
     Dosage: 6 MILLIGRAM, QD
     Route: 048
     Dates: start: 20200512, end: 20200603
  2. ARIPIPRAZOLE [Suspect]
     Active Substance: ARIPIPRAZOLE
     Indication: Psychotic disorder
     Dosage: 30 MILLIGRAM, QD
     Route: 048
     Dates: start: 20200619, end: 20200807
  3. OLANZAPINE [Suspect]
     Active Substance: OLANZAPINE
     Indication: Psychotic disorder
     Dosage: UP TO 20 MG, QD
     Route: 048
     Dates: start: 202005, end: 20200522
  4. LORAZEPAM [Concomitant]
     Active Substance: LORAZEPAM
     Indication: Psychomotor hyperactivity
     Dosage: 2.5 MILLIGRAM, TID
     Route: 048
     Dates: start: 20200504
  5. BIPERIDEN [Concomitant]
     Active Substance: BIPERIDEN
     Indication: Extrapyramidal disorder
     Dosage: 4 MILLIGRAM, BID
     Route: 048
     Dates: start: 20200527
  6. FOLIC ACID [Concomitant]
     Active Substance: FOLIC ACID
     Indication: Folate deficiency
     Route: 048
     Dates: start: 20200512
  7. HALOPERIDOL DECANOATE [Concomitant]
     Active Substance: HALOPERIDOL DECANOATE
     Route: 030
  8. HALOPERIDOL [Concomitant]
     Active Substance: HALOPERIDOL
     Route: 065

REACTIONS (13)
  - Hallucination, auditory [Recovered/Resolved]
  - Delirium [Recovered/Resolved]
  - Respiratory distress [Unknown]
  - Drug dependence [Recovered/Resolved]
  - Shock [Recovered/Resolved]
  - Persecutory delusion [Unknown]
  - Drug ineffective [Recovered/Resolved]
  - Behaviour disorder [Recovering/Resolving]
  - Psychomotor hyperactivity [Unknown]
  - Extrapyramidal disorder [Recovered/Resolved]
  - Psychomotor retardation [Recovered/Resolved]
  - Drooling [Unknown]
  - Salivary hypersecretion [Recovered/Resolved]

NARRATIVE: CASE EVENT DATE: 20200518
